FAERS Safety Report 7286847-5 (Version None)
Quarter: 2011Q1

REPORT INFORMATION
  Report Type: 
  Country: None (occurrence: None)
  Receive Date: 20110210
  Receipt Date: 20110119
  Transmission Date: 20110831
  Serious: Yes (Other)
  Sender: FDA-Public Use
  Company Number: US-BAYER-2010-008864

PATIENT
  Sex: Male

DRUGS (4)
  1. LEVITRA [Suspect]
     Indication: ERECTILE DYSFUNCTION
     Dosage: HALF OF 20 MG PILL, PRN
     Route: 048
     Dates: start: 20090101
  2. LEVITRA [Suspect]
     Dosage: FULL 20 MG PILL, PRN
  3. ATENOLOL [Concomitant]
  4. LISINOPRIL [Concomitant]

REACTIONS (3)
  - FLUSHING [None]
  - CYANOPSIA [None]
  - ERECTILE DYSFUNCTION [None]
